FAERS Safety Report 18518649 (Version 1)
Quarter: 2020Q4

REPORT INFORMATION
  Report Type: Spontaneous
  Country: US (occurrence: US)
  Receive Date: 20201118
  Receipt Date: 20201118
  Transmission Date: 20210114
  Serious: No
  Sender: FDA-Public Use
  Company Number: US-BAYER-2020-247432

PATIENT
  Age: 27 Year
  Sex: Female

DRUGS (2)
  1. OMALIZUMAB. [Concomitant]
     Active Substance: OMALIZUMAB
  2. LORATADINE. [Suspect]
     Active Substance: LORATADINE
     Dosage: 20 MG, QD

REACTIONS (2)
  - Drug ineffective [None]
  - Maternal exposure during breast feeding [None]
